FAERS Safety Report 8103455-4 (Version None)
Quarter: 2012Q1

REPORT INFORMATION
  Report Type: 
  Country: None (occurrence: None)
  Receive Date: 20120201
  Receipt Date: 20120120
  Transmission Date: 20120608
  Serious: Yes (Other)
  Sender: FDA-Public Use
  Company Number: PHHY2012JP006896

PATIENT
  Age: 52 Year
  Sex: Female

DRUGS (4)
  1. FEMARA [Suspect]
     Indication: BREAST CANCER RECURRENT
     Dosage: 2.5 MG, DAILY
     Route: 048
  2. CYCLOPHOSPHAMIDE [Concomitant]
     Dosage: UNK UKN, UNK
     Route: 065
  3. ZOMETA [Concomitant]
     Indication: METASTASES TO BONE
     Dosage: UNK UKN, UNK
     Route: 041
  4. XELODA [Suspect]
     Dosage: UNK UKN, UNK
     Route: 048

REACTIONS (3)
  - ARTHRALGIA [None]
  - CYSTITIS HAEMORRHAGIC [None]
  - MUSCULAR WEAKNESS [None]
